FAERS Safety Report 8363151-5 (Version None)
Quarter: 2012Q2

REPORT INFORMATION
  Report Type: 
  Country: None (occurrence: None)
  Receive Date: 20120516
  Receipt Date: 20111028
  Transmission Date: 20120825
  Serious: Yes (Hospitalization)
  Sender: FDA-Public Use
  Company Number: US-ALEXION-A201101654

PATIENT
  Sex: Female
  Weight: 78.6 kg

DRUGS (5)
  1. PROGRAF [Concomitant]
     Indication: ANAEMIA
     Dosage: 5 MG, Q12HR
     Route: 048
  2. DEFERASIROX [Concomitant]
     Indication: ANAEMIA
     Dosage: 1000 MG, BID
     Route: 048
  3. SOLIRIS [Suspect]
     Indication: PAROXYSMAL NOCTURNAL HAEMOGLOBINURIA
     Dosage: UNK, Q12-14 DAYS
     Route: 042
     Dates: start: 20090201
  4. NEURONTIN [Concomitant]
     Indication: PAIN
     Dosage: 600 MG, TID
     Route: 048
  5. ACYCLOVIR [Concomitant]
     Indication: HERPES SIMPLEX
     Dosage: 200 MG, TID
     Route: 048

REACTIONS (9)
  - NAUSEA [None]
  - HEADACHE [None]
  - PAROXYSMAL NOCTURNAL HAEMOGLOBINURIA [None]
  - CONDITION AGGRAVATED [None]
  - APLASTIC ANAEMIA [None]
  - DIZZINESS [None]
  - VOMITING [None]
  - PARAESTHESIA [None]
  - DIARRHOEA [None]
